FAERS Safety Report 8521625-8 (Version None)
Quarter: 2012Q3

REPORT INFORMATION
  Report Type: 
  Country: None (occurrence: None)
  Receive Date: 20120719
  Receipt Date: 20120716
  Transmission Date: 20120928
  Serious: Yes (Life-Threatening, Hospitalization)
  Sender: FDA-Public Use
  Company Number: PHHY2012FR060942

PATIENT
  Sex: Female

DRUGS (11)
  1. SPAGULAX [Concomitant]
  2. COLOPEG [Concomitant]
  3. IMATINIB MESYLATE [Suspect]
     Indication: CHRONIC MYELOID LEUKAEMIA
     Dosage: 400 MG, UNK
     Dates: start: 20051118
  4. VITAMIN D [Concomitant]
  5. ESOMEPRAZOLE [Concomitant]
  6. OXAZEPAM [Concomitant]
  7. HAVLANE [Concomitant]
  8. BLOOD TRANSFUSION, AUXILIARY PRODUCTS [Concomitant]
     Dosage: 4 PACKED RED BLOOD CELLS TRANSFUSION
  9. MOVIPREP [Concomitant]
  10. EFFEXOR [Concomitant]
  11. PROCTOLOG [Concomitant]

REACTIONS (6)
  - PNEUMOPERITONEUM [None]
  - ABDOMINAL INJURY [None]
  - DEPRESSION [None]
  - SUICIDE ATTEMPT [None]
  - HYPOTENSION [None]
  - CHEST INJURY [None]
